FAERS Safety Report 16580245 (Version 3)
Quarter: 2019Q3

REPORT INFORMATION
  Report Type: Spontaneous
  Country: FI (occurrence: FI)
  Receive Date: 20190716
  Receipt Date: 20190726
  Transmission Date: 20191004
  Serious: Yes (Life-Threatening, Hospitalization, Other)
  Sender: FDA-Public Use
  Company Number: US-PFIZER INC-2019292978

PATIENT
  Sex: Female

DRUGS (1)
  1. MARCAIN [BUPIVACAINE HYDROCHLORIDE] [Suspect]
     Active Substance: BUPIVACAINE HYDROCHLORIDE
     Dosage: UNK
     Route: 008

REACTIONS (6)
  - Loss of consciousness [Unknown]
  - Maternal exposure during pregnancy [Unknown]
  - Circulatory collapse [Unknown]
  - Erythema [Unknown]
  - Anaphylactoid reaction [Unknown]
  - Drug hypersensitivity [Unknown]
